FAERS Safety Report 21628510 (Version 1)
Quarter: 2022Q4

REPORT INFORMATION
  Report Type: Spontaneous
  Country: CN (occurrence: CN)
  Receive Date: 20221122
  Receipt Date: 20221122
  Transmission Date: 20230112
  Serious: Yes (Death, Other)
  Sender: FDA-Public Use
  Company Number: CN-PFIZER INC-PV202200106735

PATIENT
  Age: 67 Year
  Sex: Male

DRUGS (13)
  1. METHYLPREDNISOLONE SODIUM SUCCINATE [Suspect]
     Active Substance: METHYLPREDNISOLONE SODIUM SUCCINATE
     Indication: Drug eruption
     Dosage: 60 MG, QD
     Route: 041
  2. METHYLPREDNISOLONE SODIUM SUCCINATE [Suspect]
     Active Substance: METHYLPREDNISOLONE SODIUM SUCCINATE
     Dosage: 60 MG, TWICE A DAY
     Route: 041
  3. SINTILIMAB [Suspect]
     Active Substance: SINTILIMAB
     Indication: Hepatocellular carcinoma
     Dosage: 200 MG, Q3WEEKS
     Route: 041
     Dates: start: 2021
  4. MEROPENEM [Concomitant]
     Active Substance: MEROPENEM
     Dosage: 1 G, TID
     Route: 041
  5. LORATADINE [Concomitant]
     Active Substance: LORATADINE
     Dosage: 10 MG, QD
     Route: 048
  6. HALOMETASONE [Concomitant]
     Active Substance: HALOMETASONE
     Route: 061
  7. FURAZOLIDONE [Concomitant]
     Active Substance: FURAZOLIDONE
     Route: 061
  8. OMEPRAZOLE [Concomitant]
     Active Substance: OMEPRAZOLE
     Dosage: 40 MG, QD
     Route: 041
  9. ADEMETIONINE [Concomitant]
     Active Substance: ADEMETIONINE
     Indication: Prophylaxis
     Dosage: 1.0 G, QD
     Route: 041
  10. GLUTATHIONE [Concomitant]
     Active Substance: GLUTATHIONE
     Dosage: 1800 MG,  QD
     Route: 041
  11. ALBUMIN HUMAN [Concomitant]
     Active Substance: ALBUMIN HUMAN
     Dosage: 50 MG, QD
     Route: 041
  12. KANG FU XIN YE [Concomitant]
     Indication: Mucocutaneous disorder
  13. VITAMIN B2 [Concomitant]
     Active Substance: RIBOFLAVIN
     Indication: Mucocutaneous disorder
     Route: 048

REACTIONS (1)
  - Gastrointestinal haemorrhage [Fatal]
